FAERS Safety Report 25361257 (Version 1)
Quarter: 2025Q2

REPORT INFORMATION
  Report Type: Spontaneous
  Country: CZ (occurrence: CZ)
  Receive Date: 20250527
  Receipt Date: 20250527
  Transmission Date: 20250717
  Serious: Yes (Other)
  Sender: TAKEDA
  Company Number: CZ-TAKEDA-2025TUS048681

PATIENT
  Age: 30 Year
  Sex: Male

DRUGS (1)
  1. ADZYNMA [Suspect]
     Active Substance: ADAMTS13, RECOMBINANT-KRHN
     Indication: Product used for unknown indication
     Dosage: UNK UNK, Q2WEEKS
     Dates: start: 202412

REACTIONS (1)
  - Cerebrovascular accident [Unknown]

NARRATIVE: CASE EVENT DATE: 20250512
